FAERS Safety Report 8913476 (Version 1)
Quarter: 2012Q4

REPORT INFORMATION
  Report Type: 
  Country: US (occurrence: None)
  Receive Date: 20121114
  Receipt Date: 20121114
  Transmission Date: 20130627
  Serious: Yes (Other)
  Sender: FDA-Public Use
  Company Number: 2012110029

PATIENT
  Sex: Male

DRUGS (1)
  1. FELBAMATE [Suspect]
     Indication: SEIZURE

REACTIONS (1)
  - Convulsion [None]
